FAERS Safety Report 5354745-X (Version None)
Quarter: 2007Q2

REPORT INFORMATION
  Report Type: 
  Country: None (occurrence: None)
  Receive Date: 20070611
  Receipt Date: 20070531
  Transmission Date: 20071010
  Serious: Yes (Hospitalization)
  Sender: FDA-Public Use
  Company Number: 2007SP003737

PATIENT
  Age: 52 Year
  Sex: Female

DRUGS (7)
  1. PEG-INTRON [Suspect]
     Indication: HEPATITIS C
     Dosage: 120 MCG; QW; SC
     Route: 058
     Dates: start: 20060828, end: 20070219
  2. REBETOL [Suspect]
     Indication: HEPATITIS C
     Dosage: 1000 MG; QD; PO
     Route: 048
     Dates: start: 20060828, end: 20070226
  3. LOCOID (CON.) [Concomitant]
  4. ELOCON (CON.) [Concomitant]
  5. NASONEX (CON.) [Concomitant]
  6. STILNOCT (CON.) [Concomitant]
  7. ESTROGEN/PROGESTERONE (CON.) [Concomitant]

REACTIONS (7)
  - ALLODYNIA [None]
  - HYPOAESTHESIA [None]
  - MULTIPLE SCLEROSIS [None]
  - MYELITIS [None]
  - PAIN IN EXTREMITY [None]
  - PARAPLEGIA [None]
  - VASCULITIS CEREBRAL [None]
